FAERS Safety Report 5056204-0 (Version None)
Quarter: 2006Q3

REPORT INFORMATION
  Report Type: 
  Country: None (occurrence: None)
  Receive Date: 20060717
  Receipt Date: 20060706
  Transmission Date: 20061208
  Serious: Yes (Hospitalization)
  Sender: FDA-Public Use
  Company Number: 2006084055

PATIENT
  Age: 79 Year
  Sex: Female

DRUGS (6)
  1. ZOLOFT [Suspect]
     Indication: OBSESSIVE-COMPULSIVE DISORDER
     Dosage: 25 MG (25 MG, 1 IN 1 D)
     Dates: start: 20060630
  2. TIAPRIDAL (TIAPRIDE) [Suspect]
     Indication: OBSESSIVE-COMPULSIVE DISORDER
     Dosage: 6 DROP (3 IN 1 D)
     Dates: start: 20060630
  3. LEXOMIL (BROMAZEPAM) [Suspect]
     Indication: OBSESSIVE-COMPULSIVE DISORDER
     Dosage: 3/4 OF A DOSE (3 IN 1 D),
     Dates: start: 20060630
  4. AMLODIPINE [Suspect]
     Indication: DRUG USE FOR UNKNOWN INDICATION
     Dates: start: 20030101
  5. ZESTRIL [Concomitant]
  6. ASPIRIN [Concomitant]

REACTIONS (8)
  - ANXIETY [None]
  - DRUG INEFFECTIVE [None]
  - FEMORAL NECK FRACTURE [None]
  - HYPOKINESIA [None]
  - OBSESSIVE-COMPULSIVE DISORDER [None]
  - REPETITIVE SPEECH [None]
  - SLEEP DISORDER [None]
  - SOMNOLENCE [None]
